FAERS Safety Report 12165194 (Version 1)
Quarter: 2016Q1

REPORT INFORMATION
  Report Type: Report from Study
  Country: PR (occurrence: PR)
  Receive Date: 20160309
  Receipt Date: 20160309
  Transmission Date: 20160526
  Serious: Yes (Other)
  Sender: FDA-Public Use
  Company Number: PR-ABBVIE-15P-131-1499134-00

PATIENT
  Sex: Female
  Weight: 93.07 kg

DRUGS (2)
  1. LUPRON DEPOT [Suspect]
     Active Substance: LEUPROLIDE ACETATE
     Indication: ENDOMETRIOSIS
     Route: 065
  2. LUPRON DEPOT [Suspect]
     Active Substance: LEUPROLIDE ACETATE
     Route: 065
     Dates: start: 20151015

REACTIONS (6)
  - Haemorrhage [Unknown]
  - Cyst [Unknown]
  - Oophorectomy [Recovered/Resolved]
  - Blood cholesterol increased [Not Recovered/Not Resolved]
  - Hysterectomy [Recovered/Resolved]
  - Blood triglycerides increased [Not Recovered/Not Resolved]
